FAERS Safety Report 16799373 (Version 1)
Quarter: 2019Q3

REPORT INFORMATION
  Report Type: Spontaneous
  Country: FR (occurrence: FR)
  Receive Date: 20190912
  Receipt Date: 20190912
  Transmission Date: 20191005
  Serious: Yes (Life-Threatening)
  Sender: FDA-Public Use
  Company Number: FR-MYLANLABS-2019M1086016

PATIENT
  Age: 65 Year
  Sex: Male
  Weight: 48 kg

DRUGS (1)
  1. NORADRENALINE MYLAN [Suspect]
     Active Substance: NOREPINEPHRINE\NOREPINEPHRINE BITARTRATE
     Indication: HYPOTENSION
     Dosage: 96 MILLIGRAM, BID
     Route: 041
     Dates: start: 20190110

REACTIONS (3)
  - Hypotension [Recovering/Resolving]
  - Incorrect dose administered [Recovered/Resolved]
  - Medication error [Recovered/Resolved]

NARRATIVE: CASE EVENT DATE: 20190110
